FAERS Safety Report 21496932 (Version 2)
Quarter: 2022Q4

REPORT INFORMATION
  Report Type: Spontaneous
  Country: None (occurrence: FR)
  Receive Date: 20221023
  Receipt Date: 20221023
  Transmission Date: 20230113
  Serious: Yes (Hospitalization)
  Sender: FDA-Public Use
  Company Number: FR-B.Braun Medical Inc.-2134117

PATIENT
  Age: 71 Year
  Sex: Female
  Weight: 62.3 kg

DRUGS (4)
  1. METRONIDAZOLE [Suspect]
     Active Substance: METRONIDAZOLE
     Indication: Pneumonia aspiration
     Route: 065
     Dates: start: 20220106, end: 20220113
  2. ROCEPHIN [Suspect]
     Active Substance: CEFTRIAXONE SODIUM
  3. CEFTRIAXONE [Suspect]
     Active Substance: CEFTRIAXONE
     Route: 065
  4. UNSPECIFIED INGREDIENT [Suspect]
     Active Substance: UNSPECIFIED INGREDIENT

REACTIONS (1)
  - Clostridium difficile infection [None]
